FAERS Safety Report 22359601 (Version 1)
Quarter: 2023Q2

REPORT INFORMATION
  Report Type: Spontaneous
  Country: US (occurrence: None)
  Receive Date: 20230523
  Receipt Date: 20230523
  Transmission Date: 20230721
  Serious: Yes (Other)
  Sender: FDA-Public Use
  Company Number: None

PATIENT
  Age: 50 Year
  Sex: Female

DRUGS (5)
  1. OZEMPIC [Suspect]
     Active Substance: SEMAGLUTIDE
     Indication: Product used for unknown indication
     Dates: start: 20220901, end: 20230511
  2. METAPROLOL XL [Concomitant]
  3. MODAFINIL [Concomitant]
     Active Substance: MODAFINIL
  4. ONDESETRON [Concomitant]
  5. ASPIRIN [Concomitant]
     Active Substance: ASPIRIN

REACTIONS (4)
  - Sunburn [None]
  - Pain [None]
  - Pain of skin [None]
  - Sensory disturbance [None]

NARRATIVE: CASE EVENT DATE: 20220901
